FAERS Safety Report 6153717-5 (Version None)
Quarter: 2009Q2

REPORT INFORMATION
  Report Type: 
  Country: None (occurrence: None)
  Receive Date: 20090410
  Receipt Date: 20090330
  Transmission Date: 20091009
  Serious: Yes (Death, Other)
  Sender: FDA-Public Use
  Company Number: 2009-00463

PATIENT
  Age: 49 Year
  Sex: Female
  Weight: 80.7 kg

DRUGS (31)
  1. VELCADE [Suspect]
     Indication: MULTIPLE MYELOMA
     Dosage: 1 MG/M2, INTRAVENOUS
     Route: 042
     Dates: start: 20080712, end: 20080817
  2. DEXAMETHASONE TAB [Suspect]
     Indication: MULTIPLE MYELOMA
     Dosage: 40 MG, ORAL
     Route: 048
     Dates: start: 20080715, end: 20081224
  3. THALIDOMIDE [Suspect]
     Indication: MULTIPLE MYELOMA
     Dosage: 200 MG, ORAL; 50 MG
     Route: 048
     Dates: end: 20081207
  4. THALIDOMIDE [Suspect]
     Indication: MULTIPLE MYELOMA
     Dosage: 200 MG, ORAL; 50 MG
     Route: 048
     Dates: start: 20080715
  5. CISPLATIN [Suspect]
     Indication: MULTIPLE MYELOMA
     Dosage: 10 MG/M2, INTRAVENOUS; 7.5 MG/M2
     Route: 042
     Dates: end: 20080817
  6. CISPLATIN [Suspect]
     Indication: MULTIPLE MYELOMA
     Dosage: 10 MG/M2, INTRAVENOUS; 7.5 MG/M2
     Route: 042
     Dates: start: 20080715
  7. ADRIAMYCIN PFS [Suspect]
     Indication: MULTIPLE MYELOMA
     Dosage: 10 MG/M2, INTRAVENOUS; 7.5 MG/M2
     Route: 042
     Dates: end: 20080817
  8. ADRIAMYCIN PFS [Suspect]
     Indication: MULTIPLE MYELOMA
     Dosage: 10 MG/M2, INTRAVENOUS; 7.5 MG/M2
     Route: 042
     Dates: start: 20080715
  9. CYCLOPHOSPHAMIDE [Suspect]
     Indication: MULTIPLE MYELOMA
     Dosage: 400 MG/M2, INTRAVENOUS; 300  MG/M2
     Route: 042
     Dates: end: 20080817
  10. CYCLOPHOSPHAMIDE [Suspect]
     Indication: MULTIPLE MYELOMA
     Dosage: 400 MG/M2, INTRAVENOUS; 300  MG/M2
     Route: 042
     Dates: start: 20080715
  11. ETOPOSIDE [Suspect]
     Indication: MULTIPLE MYELOMA
     Dosage: 40 MG/M2, INTRAVENOUS; 30  MG/M2
     Route: 042
     Dates: end: 20080817
  12. ETOPOSIDE [Suspect]
     Indication: MULTIPLE MYELOMA
     Dosage: 40 MG/M2, INTRAVENOUS; 30  MG/M2
     Route: 042
     Dates: start: 20080715
  13. MELPHALAN(MELPHALAN) [Suspect]
     Indication: MULTIPLE MYELOMA
     Dosage: 200 MG/M2, INTRAVENOUS
     Route: 042
     Dates: start: 20080925, end: 20081221
  14. PRIMAXIN [Concomitant]
  15. TAMIFLU [Concomitant]
  16. ACYCLOVIR [Concomitant]
  17. PROTONIX [Concomitant]
  18. SYNTHROID [Concomitant]
  19. CENTRUM SILVER (TOCOPHERYL ACETATE, CALCIUM, ZINC, MINERALS NOS, VITAM [Concomitant]
  20. VITAMIN B12 [Concomitant]
  21. AMBIEN [Concomitant]
  22. PROMETHAZINE [Concomitant]
  23. ATIVAN [Concomitant]
  24. OXYCODONE HCL [Concomitant]
  25. XANAX [Concomitant]
  26. MEGACE [Concomitant]
  27. BENTYL [Concomitant]
  28. ALDACTONE [Concomitant]
  29. POTASSIUM CHLORIDE [Concomitant]
  30. HEPARIN [Concomitant]
  31. GUAIFENESIN [Concomitant]

REACTIONS (28)
  - ACUTE GRAFT VERSUS HOST DISEASE [None]
  - ACUTE MYOCARDIAL INFARCTION [None]
  - ASPARTATE AMINOTRANSFERASE INCREASED [None]
  - AUTOLOGOUS BONE MARROW TRANSPLANTATION THERAPY [None]
  - BLOOD ALKALINE PHOSPHATASE INCREASED [None]
  - BLOOD LACTATE DEHYDROGENASE INCREASED [None]
  - CARDIO-RESPIRATORY ARREST [None]
  - CEREBRAL INFARCTION [None]
  - CEREBROVASCULAR ACCIDENT [None]
  - COMA [None]
  - DEEP VEIN THROMBOSIS [None]
  - DIALYSIS [None]
  - EMBOLIC STROKE [None]
  - ENDOCARDITIS [None]
  - GAMMA-GLUTAMYLTRANSFERASE INCREASED [None]
  - LABILE BLOOD PRESSURE [None]
  - LIVER FUNCTION TEST ABNORMAL [None]
  - PLATELET COUNT DECREASED [None]
  - PNEUMONIA [None]
  - PROTHROMBIN TIME PROLONGED [None]
  - RASH [None]
  - RENAL FAILURE ACUTE [None]
  - RESPIRATORY FAILURE [None]
  - RESPIRATORY SYNCYTIAL VIRUS INFECTION [None]
  - SEPTIC SHOCK [None]
  - TACHYCARDIA [None]
  - THROMBOTIC MICROANGIOPATHY [None]
  - URINARY TRACT INFECTION ENTEROCOCCAL [None]
